FAERS Safety Report 12299618 (Version 1)
Quarter: 2016Q2

REPORT INFORMATION
  Report Type: Spontaneous
  Country: US (occurrence: US)
  Receive Date: 20160425
  Receipt Date: 20160425
  Transmission Date: 20160815
  Serious: No
  Sender: FDA-Public Use
  Company Number: US-PFIZER INC-2016226788

PATIENT
  Sex: Female

DRUGS (3)
  1. CYCLOBENZAPRINE [Suspect]
     Active Substance: CYCLOBENZAPRINE
     Dosage: UNK
  2. BIAXIN [Suspect]
     Active Substance: CLARITHROMYCIN
     Dosage: UNK
  3. DAYPRO [Suspect]
     Active Substance: OXAPROZIN
     Dosage: UNK

REACTIONS (1)
  - Drug hypersensitivity [Unknown]
